FAERS Safety Report 7889046-9 (Version None)
Quarter: 2011Q4

REPORT INFORMATION
  Report Type: 
  Country: None (occurrence: None)
  Receive Date: 20111101
  Receipt Date: 20111020
  Transmission Date: 20120403
  Serious: Yes (Hospitalization)
  Sender: FDA-Public Use
  Company Number: DSM-2011-00991

PATIENT
  Age: 64 Year
  Sex: Female

DRUGS (1)
  1. KONVERGE (OLMESARTAN MEDOXOMIL, AMLODIPINE BESILATE) (TABLET) (OLMESAR [Suspect]
     Indication: PRODUCT USED FOR UNKNOWN INDICATION
     Dosage: 20/5 MG, ORAL
     Route: 048

REACTIONS (1)
  - ANAEMIA [None]
